FAERS Safety Report 4343039-7 (Version None)
Quarter: 2004Q2

REPORT INFORMATION
  Report Type: 
  Country: None (occurrence: None)
  Receive Date: 20040421
  Receipt Date: 20040326
  Transmission Date: 20050107
  Serious: Yes (Other)
  Sender: FDA-Public Use
  Company Number: JP-ROCHE-363341

PATIENT
  Age: 25 Year
  Sex: Female
  Weight: 55 kg

DRUGS (1)
  1. TAMIFLU [Suspect]
     Route: 048
     Dates: start: 20040115, end: 20040116

REACTIONS (3)
  - RESPIRATORY DISORDER [None]
  - THROAT TIGHTNESS [None]
  - WHEEZING [None]
